FAERS Safety Report 6792934-8 (Version None)
Quarter: 2010Q2

REPORT INFORMATION
  Report Type: 
  Country: None (occurrence: None)
  Receive Date: 20100624
  Receipt Date: 20081105
  Transmission Date: 20101027
  Serious: No
  Sender: FDA-Public Use
  Company Number: US-PFIZER INC-2008088164

PATIENT
  Age: 33 Year
  Sex: Female
  Weight: 90.72 kg

DRUGS (1)
  1. GEODON [Suspect]
     Indication: AFFECTIVE DISORDER
     Dates: start: 20081007, end: 20081013

REACTIONS (1)
  - MYALGIA [None]
